FAERS Safety Report 13622738 (Version 2)
Quarter: 2019Q4

REPORT INFORMATION
  Report Type: Spontaneous
  Country: DE (occurrence: DE)
  Receive Date: 20170607
  Receipt Date: 20191216
  Transmission Date: 20200122
  Serious: Yes (Other)
  Sender: FDA-Public Use
  Company Number: DE-TEVA-773582GER

PATIENT
  Age: 3 Decade
  Sex: Female

DRUGS (1)
  1. IBUPROFEN. [Suspect]
     Active Substance: IBUPROFEN
     Indication: RESPIRATORY TRACT INFECTION
     Dosage: 400 MILLIGRAM DAILY; ON FOUR CONSECUTIVE DAYS
     Route: 048

REACTIONS (3)
  - Foetal monitoring abnormal [Recovered/Resolved]
  - Maternal exposure during pregnancy [Unknown]
  - Foetal hypokinesia [Recovered/Resolved]
